FAERS Safety Report 22112154 (Version 1)
Quarter: 2023Q1

REPORT INFORMATION
  Report Type: Report from Study
  Country: BR (occurrence: BR)
  Receive Date: 20230318
  Receipt Date: 20230318
  Transmission Date: 20230417
  Serious: Yes (Death)
  Sender: FDA-Public Use
  Company Number: BR-002147023-NVSC2023BR062635

PATIENT
  Sex: Female

DRUGS (1)
  1. ENTRESTO [Suspect]
     Active Substance: SACUBITRIL\VALSARTAN
     Indication: Product used for unknown indication
     Dosage: 100 MG (STARTED RECENTLY 10 DAYS AGO)
     Route: 065

REACTIONS (4)
  - Cardiomegaly [Fatal]
  - Hypertension [Fatal]
  - Cardio-respiratory arrest [Fatal]
  - Cardiac failure [Fatal]
